FAERS Safety Report 24411235 (Version 2)
Quarter: 2024Q4

REPORT INFORMATION
  Report Type: Report from Study
  Country: US (occurrence: US)
  Receive Date: 20241008
  Receipt Date: 20241011
  Transmission Date: 20250115
  Serious: No
  Sender: BRISTOL MYERS SQUIBB
  Company Number: US-BRISTOL-MYERS SQUIBB COMPANY-2024-158182

PATIENT
  Age: 74 Year
  Sex: Male

DRUGS (1)
  1. ELIQUIS [Suspect]
     Active Substance: APIXABAN
     Indication: Product used for unknown indication
     Dosage: TAKE ELIQUIS BY TWO HOURS OR SOMETIME ONE HOUR APART
     Dates: start: 2024

REACTIONS (3)
  - Dizziness [Unknown]
  - Confusional state [Unknown]
  - Inappropriate schedule of product administration [Unknown]
